FAERS Safety Report 6204857-3 (Version None)
Quarter: 2009Q2

REPORT INFORMATION
  Report Type: 
  Country: None (occurrence: None)
  Receive Date: 20090522
  Receipt Date: 20090508
  Transmission Date: 20091009
  Serious: Yes (Hospitalization)
  Sender: FDA-Public Use
  Company Number: KV200800915

PATIENT
  Age: 51 Year
  Sex: Male
  Weight: 90.7 kg

DRUGS (21)
  1. ISOSORBIDE MONONITRATE [Suspect]
     Indication: CARDIAC DISORDER
     Dosage: 60 MG, QD, ORAL
     Route: 048
  2. SEROQUEL [Concomitant]
  3. BENICAL (CHLORPHENAMINE MALEATE, DEXTROMETHORPHAN HYDROBROMIDE, PSEUDO [Concomitant]
  4. VENLAFAXINE HCL [Concomitant]
  5. VALIUM /00017001/ (DIAZEPAM) [Concomitant]
  6. LOPRESSOR [Concomitant]
  7. VITAMIN E /00110501/ (TOCOPHEROL) [Concomitant]
  8. ASPIRIN [Concomitant]
  9. LASIX [Concomitant]
  10. TRICOR /00499301/ (FENOFIBRATE) [Concomitant]
  11. NORVASC /00972401/ (AMLODIPINE) [Concomitant]
  12. ACTOS /01460201/ (PIOGLITAZONE) [Concomitant]
  13. GLUCOPHAGE /00082701/ (METFORMIN) [Concomitant]
  14. TICLID [Concomitant]
  15. WELLBUTRIN [Concomitant]
  16. MEVACOR [Concomitant]
  17. VITAMIN C /00008001/ (ASCORBIC ACID) [Concomitant]
  18. IRON (IRON) [Concomitant]
  19. FOLIC ACID [Concomitant]
  20. ERGOCALCIFEROL [Concomitant]
  21. CALCIUM WITH VITAMIN D /00944201/ (CALCIUM CARBONATE, COLECALCIFEROL) [Concomitant]

REACTIONS (5)
  - BLOOD PRESSURE INADEQUATELY CONTROLLED [None]
  - DIZZINESS [None]
  - HEADACHE [None]
  - PRODUCT QUALITY ISSUE [None]
  - TRANSIENT ISCHAEMIC ATTACK [None]
